FAERS Safety Report 9425542 (Version 1)
Quarter: 2013Q3

REPORT INFORMATION
  Report Type: Spontaneous
  Country: US (occurrence: US)
  Receive Date: 20130729
  Receipt Date: 20130729
  Transmission Date: 20140515
  Serious: No
  Sender: FDA-Public Use
  Company Number: US-MYLANLABS-2012S1020013

PATIENT
  Sex: Female

DRUGS (3)
  1. LEVOTHYROXINE SODIUM TABLETS, USP [Suspect]
     Indication: HYPOTHYROIDISM
     Route: 048
     Dates: start: 20120917, end: 20120924
  2. HYDROCODONE [Concomitant]
     Indication: PAIN
     Dates: end: 20120921
  3. JANUVIA [Concomitant]
     Indication: DIABETES MELLITUS
     Dates: start: 201208, end: 20120921

REACTIONS (2)
  - Hypersensitivity [Not Recovered/Not Resolved]
  - Constipation [Not Recovered/Not Resolved]
